FAERS Safety Report 9634489 (Version 1)
Quarter: 2013Q4

REPORT INFORMATION
  Report Type: Spontaneous
  Country: FR (occurrence: None)
  Receive Date: 20131017
  Receipt Date: 20131017
  Transmission Date: 20140711
  Serious: Yes (Hospitalization)
  Sender: FDA-Public Use
  Company Number: NSR_01286_2013

PATIENT
  Age: 46 Year
  Sex: 0

DRUGS (1)
  1. TRAMADOL [Suspect]
     Indication: FACIAL NEURALGIA

REACTIONS (3)
  - Malaise [None]
  - Hypoglycaemia [None]
  - Drug interaction [None]
